FAERS Safety Report 13535111 (Version 1)
Quarter: 2017Q2

REPORT INFORMATION
  Report Type: Spontaneous
  Country: US (occurrence: US)
  Receive Date: 20170510
  Receipt Date: 20170510
  Transmission Date: 20170830
  Serious: Yes (Other)
  Sender: FDA-Public Use
  Company Number: None

PATIENT
  Age: 64 Year
  Sex: Female
  Weight: 101.2 kg

DRUGS (8)
  1. SUCRALFATE. [Suspect]
     Active Substance: SUCRALFATE
     Indication: GASTRITIS EROSIVE
     Dosage: ?          QUANTITY:60 TABLET(S);?
     Route: 048
     Dates: start: 20160825, end: 20160827
  2. MAALOX ANTACID [Concomitant]
     Active Substance: ALUMINUM HYDROXIDE\DIMETHICONE\MAGNESIUM HYDROXIDE
  3. SYNTHROID [Concomitant]
     Active Substance: LEVOTHYROXINE SODIUM
  4. SUCRALFATE. [Suspect]
     Active Substance: SUCRALFATE
     Indication: OESOPHAGITIS
     Dosage: ?          QUANTITY:60 TABLET(S);?
     Route: 048
     Dates: start: 20160825, end: 20160827
  5. ALLERGY/DECONGESTANT [Concomitant]
  6. SUCRALFATE. [Suspect]
     Active Substance: SUCRALFATE
     Indication: GASTROOESOPHAGEAL REFLUX DISEASE
     Dosage: ?          QUANTITY:60 TABLET(S);?
     Route: 048
     Dates: start: 20160825, end: 20160827
  7. HUMULIN R [Concomitant]
     Active Substance: INSULIN HUMAN
  8. METOPROLOL TARTRATE. [Concomitant]
     Active Substance: METOPROLOL TARTRATE

REACTIONS (3)
  - Product quality issue [None]
  - Abdominal pain upper [None]
  - Condition aggravated [None]
